FAERS Safety Report 4396663-X (Version None)
Quarter: 2004Q3

REPORT INFORMATION
  Report Type: 
  Country: None (occurrence: None)
  Receive Date: 20040713
  Receipt Date: 20040713
  Transmission Date: 20050211
  Serious: No
  Sender: FDA-Public Use
  Company Number: None

PATIENT
  Age: 70 Year
  Sex: Male
  Weight: 145 kg

DRUGS (1)
  1. CORDIS (CYPHER STENT) DRUG ELUTING STENT [Suspect]

REACTIONS (2)
  - STENT OCCLUSION [None]
  - THROMBOSIS [None]
